FAERS Safety Report 21368254 (Version 1)
Quarter: 2022Q3

REPORT INFORMATION
  Report Type: Spontaneous
  Country: US (occurrence: US)
  Receive Date: 20220923
  Receipt Date: 20220923
  Transmission Date: 20221026
  Serious: Yes (Other)
  Sender: FDA-Public Use
  Company Number: US-NOVOPROD-960137

PATIENT
  Age: 29 Year
  Sex: Female

DRUGS (1)
  1. SAXENDA [Suspect]
     Active Substance: LIRAGLUTIDE
     Indication: Product used for unknown indication
     Dosage: 3 MG, QD
     Route: 058
     Dates: end: 20220911

REACTIONS (3)
  - Colitis [Recovered/Resolved]
  - Pancreatitis [Recovered/Resolved]
  - Blood triglycerides abnormal [Recovered/Resolved]

NARRATIVE: CASE EVENT DATE: 20220401
